FAERS Safety Report 7913376-5 (Version None)
Quarter: 2011Q4

REPORT INFORMATION
  Report Type: 
  Country: None (occurrence: None)
  Receive Date: 20111115
  Receipt Date: 20111104
  Transmission Date: 20120403
  Serious: Yes (Hospitalization)
  Sender: FDA-Public Use
  Company Number: FR-ALVOGEN-2011AL000091

PATIENT
  Age: 78 Year
  Sex: Female

DRUGS (4)
  1. HYPERIUM [Concomitant]
     Indication: PRODUCT USED FOR UNKNOWN INDICATION
     Dosage: 1 DOSAGE FORM PER DAY
     Route: 048
  2. PREDNISONE [Concomitant]
     Indication: PRODUCT USED FOR UNKNOWN INDICATION
     Dosage: 1 DOSAGE FORM PER DAY
     Route: 048
  3. FURADANTIN [Suspect]
     Indication: PRODUCT USED FOR UNKNOWN INDICATION
     Dosage: 2 DOSAGE FORM PER DAY
     Route: 048
     Dates: start: 20110512, end: 20110713
  4. OMEPRAZOLE [Concomitant]
     Indication: PRODUCT USED FOR UNKNOWN INDICATION
     Dosage: 1 DOSAGE FORM PER DAY
     Route: 048

REACTIONS (2)
  - SEPSIS [None]
  - HEPATIC FUNCTION ABNORMAL [None]
